FAERS Safety Report 21888949 (Version 2)
Quarter: 2023Q1

REPORT INFORMATION
  Report Type: Spontaneous
  Country: US (occurrence: US)
  Receive Date: 20230120
  Receipt Date: 20230317
  Transmission Date: 20230417
  Serious: No
  Sender: FDA-Public Use
  Company Number: US-SA-SAC20230119000164

PATIENT
  Age: 12 Year
  Sex: Female
  Weight: 42.3 kg

DRUGS (3)
  1. DUPIXENT [Suspect]
     Active Substance: DUPILUMAB
     Indication: Asthma
     Dosage: 200 MG, QOW
     Route: 058
     Dates: start: 20221216
  2. DUPIXENT [Suspect]
     Active Substance: DUPILUMAB
     Indication: Ill-defined disorder
  3. CEFDINIR [Concomitant]
     Active Substance: CEFDINIR
     Dosage: UNK

REACTIONS (3)
  - Eye irritation [Recovered/Resolved]
  - Dry eye [Recovered/Resolved]
  - Arthralgia [Unknown]
